FAERS Safety Report 10529792 (Version 1)
Quarter: 2014Q4

REPORT INFORMATION
  Report Type: Spontaneous
  Country: US (occurrence: None)
  Receive Date: 20141020
  Receipt Date: 20141020
  Transmission Date: 20150528
  Serious: No
  Sender: FDA-Public Use
  Company Number: None

PATIENT
  Age: 61 Year
  Sex: Female
  Weight: 80.74 kg

DRUGS (1)
  1. NAPROXEN. [Suspect]
     Active Substance: NAPROXEN
     Indication: ARTHRITIS
     Dosage: 1X220MG CAPLET TAKEN ONCE ONLY TAKEN BY MOUTH
     Route: 048
     Dates: start: 20141018, end: 20141018

REACTIONS (2)
  - Pollakiuria [None]
  - Micturition urgency [None]

NARRATIVE: CASE EVENT DATE: 20141018
